FAERS Safety Report 7098906-0 (Version None)
Quarter: 2010Q4

REPORT INFORMATION
  Report Type: 
  Country: None (occurrence: None)
  Receive Date: 20101112
  Receipt Date: 20101102
  Transmission Date: 20110411
  Serious: Yes (Other)
  Sender: FDA-Public Use
  Company Number: US-AMGEN-KDL436032

PATIENT

DRUGS (9)
  1. PROCRIT [Suspect]
     Indication: ANAEMIA
     Dosage: 40000 IU, QWK
     Dates: start: 20100701, end: 20100819
  2. PEGINTERFERON ALFA-2A [Concomitant]
  3. RIBAVIRIN [Concomitant]
  4. ALBUTEROL INHALER [Concomitant]
     Dosage: UNK UNK, PRN
  5. PROPRANOLOL [Concomitant]
  6. DEXTROPROPOXYPHENE NAPSILATE W/ ACETAMINOPHEN [Concomitant]
     Dosage: UNK UNK, PRN
  7. PREGABALIN [Concomitant]
  8. MULTI-VITAMINS [Concomitant]
  9. CYANOCOBALAMIN [Concomitant]

REACTIONS (6)
  - BURNING SENSATION [None]
  - DYSPNOEA [None]
  - ERYTHEMA [None]
  - PHARYNGEAL OEDEMA [None]
  - PRURITUS [None]
  - URTICARIA [None]
